FAERS Safety Report 9151848 (Version 2)
Quarter: 2013Q2

REPORT INFORMATION
  Report Type: Spontaneous
  Country: US (occurrence: US)
  Receive Date: 20130308
  Receipt Date: 20130401
  Transmission Date: 20140414
  Serious: Yes (Hospitalization)
  Sender: FDA-Public Use
  Company Number: US-GLAXOSMITHKLINE-A1015020A

PATIENT
  Age: 81 Year
  Sex: Female
  Weight: 51.3 kg

DRUGS (2)
  1. MELPHALAN [Suspect]
     Indication: PLASMA CELL MYELOMA
     Dosage: 4MGM2 SEE DOSAGE TEXT
     Route: 048
     Dates: start: 20120801, end: 201209
  2. PREDNISONE [Suspect]
     Indication: PLASMA CELL MYELOMA
     Dosage: 40MGM2 SEE DOSAGE TEXT
     Route: 048
     Dates: start: 20120121, end: 201209

REACTIONS (3)
  - Urinary tract infection [Recovered/Resolved]
  - Fall [Recovered/Resolved]
  - Asthenia [Unknown]
